FAERS Safety Report 7592004-5 (Version None)
Quarter: 2011Q2

REPORT INFORMATION
  Report Type: 
  Country: None (occurrence: None)
  Receive Date: 20110627
  Receipt Date: 20110613
  Transmission Date: 20111010
  Serious: Yes (Hospitalization, Other)
  Sender: FDA-Public Use
  Company Number: 2011MA007146

PATIENT
  Age: 14 Year
  Sex: Female

DRUGS (2)
  1. CONTRACEPTIVES [Concomitant]
  2. RIFAMPIN [Suspect]
     Indication: TUBERCULOSIS

REACTIONS (3)
  - VAGINAL HAEMORRHAGE [None]
  - HAEMOPTYSIS [None]
  - DRUG INTERACTION [None]
